APPROVED DRUG PRODUCT: PITOCIN
Active Ingredient: OXYTOCIN
Strength: 500USP UNITS/50ML (10USP UNITS/ML)
Dosage Form/Route: INJECTABLE;INJECTION
Application: N018261 | Product #003
Applicant: PH HEALTH LTD
Approved: Sep 5, 2012 | RLD: Yes | RS: No | Type: RX